FAERS Safety Report 6878110-9 (Version None)
Quarter: 2010Q2

REPORT INFORMATION
  Report Type: 
  Country: None (occurrence: None)
  Receive Date: 20100616
  Receipt Date: 20100402
  Transmission Date: 20101027
  Serious: No
  Sender: FDA-Public Use
  Company Number: DSA_42589_2010

PATIENT
  Sex: Female

DRUGS (5)
  1. XENAZINE [Suspect]
     Indication: HUNTINGTON'S CHOREA
     Dosage: 12.5 MG TID ORAL
     Route: 048
     Dates: start: 20090910
  2. REQUIP [Concomitant]
  3. TRAZODONE [Concomitant]
  4. SYNTHROID [Concomitant]
  5. VAGIFEM [Concomitant]

REACTIONS (4)
  - DEPRESSED MOOD [None]
  - DRY SKIN [None]
  - FATIGUE [None]
  - PRURITUS [None]
